FAERS Safety Report 4609630-5 (Version None)
Quarter: 2005Q1

REPORT INFORMATION
  Report Type: 
  Country: None (occurrence: None)
  Receive Date: 20050307
  Receipt Date: 20040917
  Transmission Date: 20050727
  Serious: Yes (Other)
  Sender: FDA-Public Use
  Company Number: 200510220BBE

PATIENT
  Sex: Male

DRUGS (5)
  1. KONYNE [Suspect]
     Indication: FACTOR IX DEFICIENCY
     Dates: start: 19780101, end: 19900101
  2. PROFILNINE [Suspect]
     Dates: start: 19780101, end: 19900101
  3. FACTOR IX COMPLEX [Suspect]
     Dates: start: 19900101
  4. PLASMA [Suspect]
     Dates: start: 19660101, end: 19710101
  5. PLASMA [Suspect]
     Dates: start: 19850101

REACTIONS (1)
  - HEPATITIS C VIRUS [None]
